FAERS Safety Report 16558143 (Version 1)
Quarter: 2019Q3

REPORT INFORMATION
  Report Type: Report from Study
  Country: BE (occurrence: BE)
  Receive Date: 20190711
  Receipt Date: 20190711
  Transmission Date: 20191004
  Serious: Yes (Death, Life-Threatening, Hospitalization, Other)
  Sender: FDA-Public Use
  Company Number: PHHY2017BE169256

PATIENT
  Age: 60 Year
  Sex: Male
  Weight: 78 kg

DRUGS (4)
  1. ENTRESTO [Suspect]
     Active Substance: SACUBITRIL\VALSARTAN
     Indication: CARDIAC FAILURE CHRONIC
     Dosage: 1 DF (49 MG SACUBITRIL, 51 MG VALSARTAN), BID
     Route: 048
     Dates: start: 20170524, end: 20170626
  2. ENTRESTO [Suspect]
     Active Substance: SACUBITRIL\VALSARTAN
     Dosage: (24 MG SACUBITRIL, 26 MG VALSARTAN) / (49 MG SACUBITRIL, 51 MG VALSARTAN)
     Route: 048
     Dates: start: 20170801, end: 20170925
  3. ENTRESTO [Suspect]
     Active Substance: SACUBITRIL\VALSARTAN
     Dosage: 1 DF (49 MG SACUBITRIL, 51 MG VALSARTAN), BID
     Route: 048
     Dates: start: 20170926, end: 20180318
  4. ENTRESTO [Suspect]
     Active Substance: SACUBITRIL\VALSARTAN
     Dosage: 1 DF (24 MG SACUBITRIL, 26 MG VALSARTAN), BID
     Route: 048
     Dates: start: 20170627, end: 20170731

REACTIONS (10)
  - Cardiogenic shock [Not Recovered/Not Resolved]
  - Coma [Not Recovered/Not Resolved]
  - Orthopnoea [Not Recovered/Not Resolved]
  - Cardiac failure [Fatal]
  - Acute kidney injury [Not Recovered/Not Resolved]
  - Inappropriate schedule of product administration [Unknown]
  - Ventricular fibrillation [Fatal]
  - Syncope [Recovered/Resolved]
  - Bronchitis [Recovered/Resolved]
  - Cardio-respiratory arrest [Fatal]

NARRATIVE: CASE EVENT DATE: 20170601
